FAERS Safety Report 16310913 (Version 1)
Quarter: 2019Q2

REPORT INFORMATION
  Report Type: Report from Study
  Country: CA (occurrence: CA)
  Receive Date: 20190514
  Receipt Date: 20190514
  Transmission Date: 20190711
  Serious: Yes (Hospitalization)
  Sender: FDA-Public Use
  Company Number: CA-JNJFOC-20190516399

PATIENT
  Age: 31 Year
  Sex: Female
  Weight: 122 kg

DRUGS (1)
  1. REMICADE [Suspect]
     Active Substance: INFLIXIMAB
     Indication: COLITIS ULCERATIVE
     Dosage: STRENGTH = 100 MG
     Route: 042
     Dates: start: 20130827, end: 20190416

REACTIONS (3)
  - Product use issue [Unknown]
  - Off label use [Unknown]
  - Colectomy [Unknown]

NARRATIVE: CASE EVENT DATE: 20130827
